FAERS Safety Report 7226324-0 (Version None)
Quarter: 2011Q1

REPORT INFORMATION
  Report Type: 
  Country: None (occurrence: None)
  Receive Date: 20110114
  Receipt Date: 20110107
  Transmission Date: 20110831
  Serious: Yes (Other)
  Sender: FDA-Public Use
  Company Number: CHPA2011US00808

PATIENT
  Age: 65 Year
  Sex: Female
  Weight: 111 kg

DRUGS (2)
  1. VOLTAREN [Suspect]
     Indication: NECK PAIN
     Dosage: UNK, 4 TIMES
     Route: 061
  2. LOVENOX [Concomitant]

REACTIONS (5)
  - DYSPNOEA [None]
  - THROAT TIGHTNESS [None]
  - WRONG TECHNIQUE IN DRUG USAGE PROCESS [None]
  - OROPHARYNGEAL PAIN [None]
  - DRUG ADMINISTERED AT INAPPROPRIATE SITE [None]
